FAERS Safety Report 23859095 (Version 1)
Quarter: 2024Q2

REPORT INFORMATION
  Report Type: Spontaneous
  Country: US (occurrence: None)
  Receive Date: 20240515
  Receipt Date: 20240515
  Transmission Date: 20240716
  Serious: Yes (Hospitalization)
  Sender: FDA-Public Use
  Company Number: None

PATIENT
  Age: 69 Year
  Sex: Female
  Weight: 63 kg

DRUGS (1)
  1. BUDESONIDE\FORMOTEROL FUMARATE [Suspect]
     Active Substance: BUDESONIDE\FORMOTEROL FUMARATE
     Indication: Product used for unknown indication
     Dosage: OTHER QUANTITY : 320/9 MCG;?FREQUENCY : TWICE A DAY;?
     Route: 055
     Dates: start: 20231114, end: 20231227

REACTIONS (2)
  - Skin burning sensation [None]
  - Dyspnoea [None]

NARRATIVE: CASE EVENT DATE: 20231227
